FAERS Safety Report 20935051 (Version 4)
Quarter: 2023Q1

REPORT INFORMATION
  Report Type: Report from Study
  Country: US (occurrence: US)
  Receive Date: 20220608
  Receipt Date: 20230112
  Transmission Date: 20230418
  Serious: Yes (Other)
  Sender: FDA-Public Use
  Company Number: US-ABBVIE-22K-163-4425223-00

PATIENT
  Sex: Female

DRUGS (2)
  1. IMBRUVICA [Suspect]
     Active Substance: IBRUTINIB
     Indication: Chronic lymphocytic leukaemia
     Dosage: 420 MG
     Route: 048
     Dates: start: 202205
  2. IMBRUVICA [Suspect]
     Active Substance: IBRUTINIB
     Indication: Chronic lymphocytic leukaemia
     Route: 048

REACTIONS (10)
  - Bronchitis [Unknown]
  - Hypoaesthesia [Unknown]
  - COVID-19 [Unknown]
  - Ocular neoplasm [Unknown]
  - Stomatitis [Unknown]
  - Dental caries [Unknown]
  - Diarrhoea [Unknown]
  - Toothache [Unknown]
  - Diabetes mellitus [Unknown]
  - Eye disorder [Unknown]

NARRATIVE: CASE EVENT DATE: 20220101
